FAERS Safety Report 24131159 (Version 1)
Quarter: 2024Q3

REPORT INFORMATION
  Report Type: Spontaneous
  Country: QA (occurrence: QA)
  Receive Date: 20240724
  Receipt Date: 20240724
  Transmission Date: 20241017
  Serious: Yes (Other)
  Sender: RANBAXY
  Company Number: QA-SUN PHARMACEUTICAL INDUSTRIES LTD-2024RR-458344

PATIENT
  Age: 39 Year
  Sex: Male

DRUGS (1)
  1. LENALIDOMIDE [Suspect]
     Active Substance: LENALIDOMIDE
     Indication: Plasma cell myeloma
     Dosage: 10 MILLIGRAM, UNK
     Route: 065

REACTIONS (1)
  - Disease recurrence [Unknown]
